FAERS Safety Report 9989445 (Version 1)
Quarter: 2014Q1

REPORT INFORMATION
  Report Type: Spontaneous
  Country: US (occurrence: None)
  Receive Date: 20140123
  Receipt Date: 20140123
  Transmission Date: 20141002
  Serious: Yes (Hospitalization)
  Sender: FDA-Public Use
  Company Number: UTC-039452

PATIENT
  Age: 55 Year
  Sex: Female

DRUGS (1)
  1. REMODULIN [Suspect]
     Indication: PULMONARY ARTERIAL HYPERTENSION
     Dosage: 21.6 UG/KG )0.0145 UG/KG , 1 IN 1 MIN, INTRAVENOUS DRIP THERAPY DATES 05/NI/2013 TO ONGOING
     Route: 041
     Dates: start: 201305

REACTIONS (1)
  - Bacteraemia [None]
